FAERS Safety Report 10955112 (Version 2)
Quarter: 2015Q2

REPORT INFORMATION
  Report Type: Report from Study
  Country: TH (occurrence: TH)
  Receive Date: 20150326
  Receipt Date: 20150408
  Transmission Date: 20150821
  Serious: Yes (Life-Threatening)
  Sender: FDA-Public Use
  Company Number: TH-UCBSA-2015009074

PATIENT
  Age: 41 Year
  Sex: Female
  Weight: 64.8 kg

DRUGS (1)
  1. *CARBAMAZEPINE [Suspect]
     Active Substance: CARBAMAZEPINE
     Indication: EPILEPSY
     Dosage: LACOSAMIDE 100 MG/LACOSAMIDE 50 MG/ CARBAMAZEPINE 200 MG/ PLACEBO, 2 TABLETS BID
     Route: 048
     Dates: start: 20140618

REACTIONS (1)
  - Endometrial adenocarcinoma [Not Recovered/Not Resolved]

NARRATIVE: CASE EVENT DATE: 20150126
